FAERS Safety Report 22109848 (Version 2)
Quarter: 2023Q1

REPORT INFORMATION
  Report Type: Spontaneous
  Country: US (occurrence: US)
  Receive Date: 20230317
  Receipt Date: 20230330
  Transmission Date: 20230418
  Serious: Yes (Hospitalization)
  Sender: FDA-Public Use
  Company Number: US-PARI RESPIRATORY EQUIPMENT, INC.-2023PAR00012

PATIENT
  Age: 43 Year
  Sex: Female

DRUGS (3)
  1. KITABIS PAK [Suspect]
     Active Substance: TOBRAMYCIN
     Indication: Cystic fibrosis
     Dosage: 1 VIAL (300 MG/5 ML) VIA NEBULIZER, 2X/DAY ALTERNATING 28 DAYS ON AND 28 DAYS OFF
     Dates: start: 20221229
  2. PULMOZYME [Concomitant]
     Active Substance: DORNASE ALFA
  3. SYMDEKO [Concomitant]
     Active Substance: IVACAFTOR\TEZACAFTOR

REACTIONS (1)
  - Pneumonia bacterial [Unknown]

NARRATIVE: CASE EVENT DATE: 20230301
